FAERS Safety Report 7933899-2 (Version None)
Quarter: 2011Q4

REPORT INFORMATION
  Report Type: 
  Country: None (occurrence: None)
  Receive Date: 20111122
  Receipt Date: 20111115
  Transmission Date: 20120403
  Serious: Yes (Hospitalization)
  Sender: FDA-Public Use
  Company Number: US-US-EMD SERONO, INC.-7091430

PATIENT
  Sex: Female

DRUGS (1)
  1. REBIF [Suspect]
     Indication: PRODUCT USED FOR UNKNOWN INDICATION
     Route: 058
     Dates: start: 20100506

REACTIONS (9)
  - DECREASED APPETITE [None]
  - MEMORY IMPAIRMENT [None]
  - HEADACHE [None]
  - CENTRAL NERVOUS SYSTEM LESION [None]
  - VOMITING [None]
  - INJECTION SITE ERYTHEMA [None]
  - BLINDNESS UNILATERAL [None]
  - HYPOAESTHESIA [None]
  - PYREXIA [None]
